FAERS Safety Report 5624460-3 (Version None)
Quarter: 2008Q1

REPORT INFORMATION
  Report Type: 
  Country: None (occurrence: None)
  Receive Date: 20080208
  Receipt Date: 20080125
  Transmission Date: 20080703
  Serious: Yes (Death)
  Sender: FDA-Public Use
  Company Number: US022478

PATIENT
  Age: 56 Year
  Sex: Female

DRUGS (9)
  1. FENTANYL [Suspect]
     Dosage: ORAL
     Route: 048
  2. HYDROCODONE BITARTRATE AND ACETAMINOPHEN [Suspect]
     Dosage: ORAQL
     Route: 048
  3. OXYCODONE HCL [Suspect]
     Dosage: ORAL
     Route: 048
  4. CARISOPRODOL [Suspect]
     Dosage: ORAL
     Route: 047
  5. DIPHENHYDRAMINE HCL [Suspect]
     Dosage: ORAL
     Route: 048
  6. ACETAMINOPHEN IN COMBINATION [Suspect]
     Dosage: ORAL
     Route: 048
  7. CITALOPRAM HYDROBROMIDE [Suspect]
     Dosage: ORAL
     Route: 048
  8. BUPROPION HCL [Suspect]
     Dosage: ORAL
     Route: 048
  9. TRAZODONE HCL [Suspect]
     Dosage: ORAL
     Route: 048

REACTIONS (1)
  - UNEVALUABLE EVENT [None]
